FAERS Safety Report 6887007-X (Version None)
Quarter: 2010Q3

REPORT INFORMATION
  Report Type: 
  Country: None (occurrence: None)
  Receive Date: 20100730
  Receipt Date: 20100719
  Transmission Date: 20110219
  Serious: Yes (Hospitalization)
  Sender: FDA-Public Use
  Company Number: FR-BRISTOL-MYERS SQUIBB COMPANY-15213390

PATIENT
  Age: 38 Year
  Sex: Male

DRUGS (6)
  1. GLUCOPHAGE [Suspect]
     Route: 048
     Dates: start: 20091116, end: 20091126
  2. BACTRIM [Suspect]
     Route: 048
     Dates: start: 20091117, end: 20091126
  3. TRIZIVIR [Suspect]
     Route: 048
     Dates: start: 20091123, end: 20091126
  4. ZIDOVUDINE [Concomitant]
     Route: 048
  5. LAMIVUDINE [Concomitant]
     Route: 048
  6. KALETRA TABS 200 MG/50 MG [Concomitant]
     Dosage: 1 DF=200/50MG
     Route: 048

REACTIONS (5)
  - BLOOD CREATINE PHOSPHOKINASE INCREASED [None]
  - LACTIC ACIDOSIS [None]
  - MUSCULOSKELETAL PAIN [None]
  - PYREXIA [None]
  - RENAL FAILURE ACUTE [None]
